FAERS Safety Report 7491199-1 (Version None)
Quarter: 2011Q2

REPORT INFORMATION
  Report Type: 
  Country: None (occurrence: None)
  Receive Date: 20110518
  Receipt Date: 20110504
  Transmission Date: 20111010
  Serious: Yes (Death)
  Sender: FDA-Public Use
  Company Number: JPI-P-014119

PATIENT
  Age: 46 Year
  Sex: Male
  Weight: 116.5744 kg

DRUGS (6)
  1. FENTANYL LOLLIPOP [Concomitant]
  2. FENTANYL-100 [Concomitant]
  3. XYREM [Suspect]
     Indication: CATAPLEXY
     Dosage: ORAL (3 GM, DAILY), ORAL
     Route: 048
     Dates: start: 20071001
  4. MEPERIDINE [Concomitant]
  5. ATORVASTATIN [Concomitant]
  6. OXYCODONE HCL [Concomitant]

REACTIONS (14)
  - HYPERTENSIVE HEART DISEASE [None]
  - OEDEMA PERIPHERAL [None]
  - DRUG INEFFECTIVE [None]
  - HEAD INJURY [None]
  - MYDRIASIS [None]
  - HEADACHE [None]
  - SOMNAMBULISM [None]
  - HYPERHIDROSIS [None]
  - SPINAL COLUMN INJURY [None]
  - PAIN [None]
  - FALL [None]
  - CELLULITIS [None]
  - GENITAL RASH [None]
  - CHEST DISCOMFORT [None]
